FAERS Safety Report 26027589 (Version 1)
Quarter: 2025Q4

REPORT INFORMATION
  Report Type: Spontaneous
  Country: CA (occurrence: CA)
  Receive Date: 20251111
  Receipt Date: 20251111
  Transmission Date: 20260117
  Serious: Yes (Hospitalization, Other)
  Sender: MYLAN
  Company Number: CA-MYLANLABS-2025M1095469

PATIENT
  Age: 61 Year
  Sex: Male

DRUGS (60)
  1. VENLAFAXINE HCL [Suspect]
     Active Substance: VENLAFAXINE HYDROCHLORIDE
     Indication: Depression
     Dosage: 1800 MILLIGRAM
  2. VENLAFAXINE HCL [Suspect]
     Active Substance: VENLAFAXINE HYDROCHLORIDE
     Dosage: 1800 MILLIGRAM
  3. VENLAFAXINE HCL [Suspect]
     Active Substance: VENLAFAXINE HYDROCHLORIDE
     Dosage: 1800 MILLIGRAM
     Route: 065
  4. VENLAFAXINE HCL [Suspect]
     Active Substance: VENLAFAXINE HYDROCHLORIDE
     Dosage: 1800 MILLIGRAM
     Route: 065
  5. VENLAFAXINE HCL [Suspect]
     Active Substance: VENLAFAXINE HYDROCHLORIDE
     Dosage: UNK
  6. VENLAFAXINE HCL [Suspect]
     Active Substance: VENLAFAXINE HYDROCHLORIDE
     Dosage: UNK
  7. VENLAFAXINE HCL [Suspect]
     Active Substance: VENLAFAXINE HYDROCHLORIDE
     Dosage: UNK
     Route: 065
  8. VENLAFAXINE HCL [Suspect]
     Active Substance: VENLAFAXINE HYDROCHLORIDE
     Dosage: UNK
     Route: 065
  9. VENLAFAXINE HCL [Suspect]
     Active Substance: VENLAFAXINE HYDROCHLORIDE
     Dosage: 150 MILLIGRAM, QD (1 EVERY 1 DAYS)
  10. VENLAFAXINE HCL [Suspect]
     Active Substance: VENLAFAXINE HYDROCHLORIDE
     Dosage: 150 MILLIGRAM, QD (1 EVERY 1 DAYS)
     Route: 048
  11. VENLAFAXINE HCL [Suspect]
     Active Substance: VENLAFAXINE HYDROCHLORIDE
     Dosage: 150 MILLIGRAM, QD (1 EVERY 1 DAYS)
  12. VENLAFAXINE HCL [Suspect]
     Active Substance: VENLAFAXINE HYDROCHLORIDE
     Dosage: 150 MILLIGRAM, QD (1 EVERY 1 DAYS)
     Route: 048
  13. SPIRONOLACTONE [Suspect]
     Active Substance: SPIRONOLACTONE
     Indication: Cardiac failure
     Dosage: 12.5 MILLIGRAM, QD (1 EVERY 1 DAYS)
  14. SPIRONOLACTONE [Suspect]
     Active Substance: SPIRONOLACTONE
     Dosage: 12.5 MILLIGRAM, QD (1 EVERY 1 DAYS)
     Route: 048
  15. SPIRONOLACTONE [Suspect]
     Active Substance: SPIRONOLACTONE
     Dosage: 12.5 MILLIGRAM, QD (1 EVERY 1 DAYS)
     Route: 048
  16. SPIRONOLACTONE [Suspect]
     Active Substance: SPIRONOLACTONE
     Dosage: 12.5 MILLIGRAM, QD (1 EVERY 1 DAYS)
  17. AMIODARONE [Suspect]
     Active Substance: AMIODARONE
     Indication: Cardiac failure
     Dosage: 4.8 GRAM
  18. AMIODARONE [Suspect]
     Active Substance: AMIODARONE
     Dosage: 4.8 GRAM
  19. AMIODARONE [Suspect]
     Active Substance: AMIODARONE
     Dosage: 4.8 GRAM
     Route: 065
  20. AMIODARONE [Suspect]
     Active Substance: AMIODARONE
     Dosage: 4.8 GRAM
     Route: 065
  21. AMIODARONE [Suspect]
     Active Substance: AMIODARONE
     Dosage: 400 MILLIGRAM, QD (1 EVERY 1 DAYS)
  22. AMIODARONE [Suspect]
     Active Substance: AMIODARONE
     Dosage: 400 MILLIGRAM, QD (1 EVERY 1 DAYS)
  23. AMIODARONE [Suspect]
     Active Substance: AMIODARONE
     Dosage: 400 MILLIGRAM, QD (1 EVERY 1 DAYS)
     Route: 048
  24. AMIODARONE [Suspect]
     Active Substance: AMIODARONE
     Dosage: 400 MILLIGRAM, QD (1 EVERY 1 DAYS)
     Route: 048
  25. ACORAMIDIS [Concomitant]
     Active Substance: ACORAMIDIS
     Indication: Cardiac amyloidosis
     Dosage: UNK
  26. ACORAMIDIS [Concomitant]
     Active Substance: ACORAMIDIS
     Dosage: UNK
     Route: 065
  27. ACORAMIDIS [Concomitant]
     Active Substance: ACORAMIDIS
     Dosage: UNK
     Route: 065
  28. ACORAMIDIS [Concomitant]
     Active Substance: ACORAMIDIS
     Dosage: UNK
  29. ALLOPURINOL [Concomitant]
     Active Substance: ALLOPURINOL
     Indication: Gout
     Dosage: 300 MILLIGRAM, QD (1 EVERY 1 DAYS)
  30. ALLOPURINOL [Concomitant]
     Active Substance: ALLOPURINOL
     Dosage: 300 MILLIGRAM, QD (1 EVERY 1 DAYS)
     Route: 048
  31. ALLOPURINOL [Concomitant]
     Active Substance: ALLOPURINOL
     Dosage: 300 MILLIGRAM, QD (1 EVERY 1 DAYS)
     Route: 048
  32. ALLOPURINOL [Concomitant]
     Active Substance: ALLOPURINOL
     Dosage: 300 MILLIGRAM, QD (1 EVERY 1 DAYS)
  33. APIXABAN [Concomitant]
     Active Substance: APIXABAN
     Indication: Atrial fibrillation
     Dosage: 5 MILLIGRAM, QD (1 EVERY 1 DAYS)
  34. APIXABAN [Concomitant]
     Active Substance: APIXABAN
     Dosage: 5 MILLIGRAM, QD (1 EVERY 1 DAYS)
     Route: 048
  35. APIXABAN [Concomitant]
     Active Substance: APIXABAN
     Dosage: 5 MILLIGRAM, QD (1 EVERY 1 DAYS)
     Route: 048
  36. APIXABAN [Concomitant]
     Active Substance: APIXABAN
     Dosage: 5 MILLIGRAM, QD (1 EVERY 1 DAYS)
  37. ATORVASTATIN CALCIUM [Concomitant]
     Active Substance: ATORVASTATIN CALCIUM
     Indication: Dyslipidaemia
     Dosage: 40 MILLIGRAM
  38. ATORVASTATIN CALCIUM [Concomitant]
     Active Substance: ATORVASTATIN CALCIUM
     Dosage: 40 MILLIGRAM
     Route: 048
  39. ATORVASTATIN CALCIUM [Concomitant]
     Active Substance: ATORVASTATIN CALCIUM
     Dosage: 40 MILLIGRAM
     Route: 048
  40. ATORVASTATIN CALCIUM [Concomitant]
     Active Substance: ATORVASTATIN CALCIUM
     Dosage: 40 MILLIGRAM
  41. DIGOXIN [Concomitant]
     Active Substance: DIGOXIN
     Indication: Atrial fibrillation
     Dosage: 0.125 MILLIGRAM, QD (1 EVERY 1 DAYS)
  42. DIGOXIN [Concomitant]
     Active Substance: DIGOXIN
     Dosage: 0.125 MILLIGRAM, QD (1 EVERY 1 DAYS)
     Route: 048
  43. DIGOXIN [Concomitant]
     Active Substance: DIGOXIN
     Dosage: 0.125 MILLIGRAM, QD (1 EVERY 1 DAYS)
     Route: 048
  44. DIGOXIN [Concomitant]
     Active Substance: DIGOXIN
     Dosage: 0.125 MILLIGRAM, QD (1 EVERY 1 DAYS)
  45. MELATONIN [Concomitant]
     Active Substance: MELATONIN
     Indication: Insomnia
     Dosage: 6 MILLIGRAM, QD (1 EVERY 1 DAYS)
  46. MELATONIN [Concomitant]
     Active Substance: MELATONIN
     Dosage: 6 MILLIGRAM, QD (1 EVERY 1 DAYS)
     Route: 048
  47. MELATONIN [Concomitant]
     Active Substance: MELATONIN
     Dosage: 6 MILLIGRAM, QD (1 EVERY 1 DAYS)
     Route: 048
  48. MELATONIN [Concomitant]
     Active Substance: MELATONIN
     Dosage: 6 MILLIGRAM, QD (1 EVERY 1 DAYS)
  49. MIDODRINE [Concomitant]
     Active Substance: MIDODRINE
     Indication: Hypotension
     Dosage: 30 MILLIGRAM, QD (1 EVERY 1 DAYS)
  50. MIDODRINE [Concomitant]
     Active Substance: MIDODRINE
     Dosage: 30 MILLIGRAM, QD (1 EVERY 1 DAYS)
     Route: 048
  51. MIDODRINE [Concomitant]
     Active Substance: MIDODRINE
     Dosage: 30 MILLIGRAM, QD (1 EVERY 1 DAYS)
     Route: 048
  52. MIDODRINE [Concomitant]
     Active Substance: MIDODRINE
     Dosage: 30 MILLIGRAM, QD (1 EVERY 1 DAYS)
  53. VITAMIN D3 [Concomitant]
     Active Substance: CHOLECALCIFEROL
     Dosage: 10000 INTERNATIONAL UNIT, QW (1 EVERY 1 WEEKS)
  54. VITAMIN D3 [Concomitant]
     Active Substance: CHOLECALCIFEROL
     Dosage: 10000 INTERNATIONAL UNIT, QW (1 EVERY 1 WEEKS)
     Route: 048
  55. VITAMIN D3 [Concomitant]
     Active Substance: CHOLECALCIFEROL
     Dosage: 10000 INTERNATIONAL UNIT, QW (1 EVERY 1 WEEKS)
     Route: 048
  56. VITAMIN D3 [Concomitant]
     Active Substance: CHOLECALCIFEROL
     Dosage: 10000 INTERNATIONAL UNIT, QW (1 EVERY 1 WEEKS)
  57. ZOPICLONE [Concomitant]
     Active Substance: ZOPICLONE
     Indication: Insomnia
     Dosage: 100 MILLIGRAM, QD (1 EVERY 1 DAYS)
  58. ZOPICLONE [Concomitant]
     Active Substance: ZOPICLONE
     Dosage: 100 MILLIGRAM, QD (1 EVERY 1 DAYS)
     Route: 048
  59. ZOPICLONE [Concomitant]
     Active Substance: ZOPICLONE
     Dosage: 100 MILLIGRAM, QD (1 EVERY 1 DAYS)
     Route: 048
  60. ZOPICLONE [Concomitant]
     Active Substance: ZOPICLONE
     Dosage: 100 MILLIGRAM, QD (1 EVERY 1 DAYS)

REACTIONS (44)
  - Acute kidney injury [Recovered/Resolved]
  - Altered state of consciousness [Recovered/Resolved]
  - Atrial pressure increased [Recovered/Resolved]
  - Atrial enlargement [Recovered/Resolved]
  - Bacteraemia [Recovered/Resolved]
  - Bradycardia [Recovered/Resolved]
  - Bundle branch block left [Recovered/Resolved]
  - Cardiac cirrhosis [Recovered/Resolved]
  - Chest pain [Recovered/Resolved]
  - Coma scale abnormal [Recovered/Resolved]
  - Condition aggravated [Recovered/Resolved]
  - Diverticulitis [Recovered/Resolved]
  - Ejection fraction decreased [Recovered/Resolved]
  - Electrocardiogram abnormal [Recovered/Resolved]
  - Endocarditis [Recovered/Resolved]
  - Fall [Recovered/Resolved]
  - Gram stain positive [Recovered/Resolved]
  - Hepatic cirrhosis [Recovered/Resolved]
  - Hypervolaemia [Recovered/Resolved]
  - Hypokalaemia [Recovered/Resolved]
  - Impulsive behaviour [Recovered/Resolved]
  - Inferior vena cava dilatation [Recovered/Resolved]
  - Inguinal hernia [Recovered/Resolved]
  - Left ventricular dilatation [Recovered/Resolved]
  - Left ventricular dysfunction [Recovered/Resolved]
  - Left ventricular hypertrophy [Recovered/Resolved]
  - Malaise [Recovered/Resolved]
  - Right ventricular enlargement [Recovered/Resolved]
  - Mitral valve incompetence [Recovered/Resolved]
  - SARS-CoV-2 test positive [Recovered/Resolved]
  - Suicidal ideation [Recovered/Resolved]
  - Suicide attempt [Recovered/Resolved]
  - Tricuspid valve incompetence [Recovered/Resolved]
  - Tricuspid valve thickening [Recovered/Resolved]
  - Urinary tract infection [Recovered/Resolved]
  - Ventricular hypokinesia [Recovered/Resolved]
  - Wound [Recovered/Resolved]
  - Constipation [Recovered/Resolved]
  - Delirium [Recovered/Resolved]
  - Hypotension [Recovered/Resolved]
  - Insomnia [Recovered/Resolved]
  - Ventricular tachycardia [Recovered/Resolved]
  - Drug ineffective for unapproved indication [Recovered/Resolved]
  - Intentional overdose [Recovered/Resolved]
